FAERS Safety Report 20220296 (Version 9)
Quarter: 2022Q3

REPORT INFORMATION
  Report Type: Report from Study
  Country: US (occurrence: US)
  Receive Date: 20211223
  Receipt Date: 20220914
  Transmission Date: 20221026
  Serious: No
  Sender: FDA-Public Use
  Company Number: US-NOVARTISTESTPH-NVSC2021US294269

PATIENT
  Age: 75 Year
  Sex: Male

DRUGS (7)
  1. ENTRESTO [Suspect]
     Active Substance: SACUBITRIL\VALSARTAN
     Indication: Product used for unknown indication
     Dosage: 50 MG, (24/26MG)
     Route: 065
  2. ENTRESTO [Suspect]
     Active Substance: SACUBITRIL\VALSARTAN
     Dosage: 100 MG, (REDUCED 24/26MG)
     Route: 065
  3. ENTRESTO [Suspect]
     Active Substance: SACUBITRIL\VALSARTAN
     Dosage: UNK, BID (49/51 MG)
     Route: 048
     Dates: start: 202111
  4. ENTRESTO [Suspect]
     Active Substance: SACUBITRIL\VALSARTAN
     Dosage: 50 MG, (24/26 MG)
     Route: 065
     Dates: start: 20211219
  5. ENTRESTO [Suspect]
     Active Substance: SACUBITRIL\VALSARTAN
     Dosage: UNK
     Route: 065
  6. ENTRESTO [Suspect]
     Active Substance: SACUBITRIL\VALSARTAN
     Dosage: 100 MG, (49/51MG)
     Route: 065
     Dates: start: 20211227
  7. JARDIANCE [Concomitant]
     Active Substance: EMPAGLIFLOZIN
     Indication: Diabetes mellitus
     Dosage: UNK, STARTED JARDIACE ABOUT 1 MONTH AFTER ENTRESTO
     Route: 065
     Dates: start: 202112

REACTIONS (11)
  - Hypertension [Recovering/Resolving]
  - Malaise [Unknown]
  - Joint swelling [Unknown]
  - Myalgia [Unknown]
  - Weight decreased [Unknown]
  - Arthralgia [Unknown]
  - Hypersensitivity [Unknown]
  - Red blood cell count abnormal [Unknown]
  - Blood glucose fluctuation [Unknown]
  - Stress [Unknown]
  - Intentional dose omission [Unknown]

NARRATIVE: CASE EVENT DATE: 20211218
